FAERS Safety Report 18581775 (Version 1)
Quarter: 2020Q4

REPORT INFORMATION
  Report Type: Report from Study
  Country: US (occurrence: US)
  Receive Date: 20201204
  Receipt Date: 20201204
  Transmission Date: 20210114
  Serious: Yes (Other)
  Sender: FDA-Public Use
  Company Number: US-VERTEX PHARMACEUTICALS-2020-023503

PATIENT
  Sex: Female

DRUGS (2)
  1. TRIKAFTA [Suspect]
     Active Substance: ELEXACAFTOR\IVACAFTOR\TEZACAFTOR
     Indication: CYSTIC FIBROSIS
     Dosage: 2 TAB (ELEXA100MG/TEZA50MG/IVA75MG) IN AM AND 1 TAB (IVA150MG) IN PM
     Route: 048
     Dates: start: 20191116, end: 2020
  2. TRIKAFTA [Suspect]
     Active Substance: ELEXACAFTOR\IVACAFTOR\TEZACAFTOR
     Dosage: REDUCED DOSE (NOT TAKING EVENING DOSE)
     Route: 048
     Dates: start: 20200810

REACTIONS (8)
  - Urticaria [Not Recovered/Not Resolved]
  - Arthralgia [Unknown]
  - Muscle disorder [Unknown]
  - Joint dislocation [Unknown]
  - Vaginal haemorrhage [Not Recovered/Not Resolved]
  - Weight decreased [Unknown]
  - Thyroid disorder [Unknown]
  - Anaemia [Not Recovered/Not Resolved]

NARRATIVE: CASE EVENT DATE: 2020
